FAERS Safety Report 15091642 (Version 1)
Quarter: 2018Q2

REPORT INFORMATION
  Report Type: Report from Study
  Country: US (occurrence: US)
  Receive Date: 20180629
  Receipt Date: 20180629
  Transmission Date: 20180711
  Serious: No
  Sender: FDA-Public Use
  Company Number: US-AMGEN-USASP2011023163

PATIENT
  Age: 67 Year
  Sex: Female

DRUGS (1)
  1. PROLIA [Suspect]
     Active Substance: DENOSUMAB
     Indication: OSTEOPOROSIS POSTMENOPAUSAL
     Dosage: 60 MG, Q6MO
     Dates: start: 201011

REACTIONS (5)
  - Stress [Unknown]
  - Toothache [Unknown]
  - Blood cholesterol increased [Unknown]
  - Foot deformity [Unknown]
  - Wrist deformity [Unknown]

NARRATIVE: CASE EVENT DATE: 201012
